FAERS Safety Report 4768019-9 (Version None)
Quarter: 2005Q3

REPORT INFORMATION
  Report Type: 
  Country: None (occurrence: None)
  Receive Date: 20050913
  Receipt Date: 20050826
  Transmission Date: 20060218
  Serious: Yes (Disabling, Other)
  Sender: FDA-Public Use
  Company Number: USA-2005-0020661

PATIENT
  Age: 54 Year
  Sex: Male

DRUGS (2)
  1. OXYCONTIN [Suspect]
     Indication: HEADACHE
     Dosage: ORAL
     Route: 048
  2. OXYCODONE HCL [Suspect]
     Indication: PAIN
     Dosage: ORAL
     Route: 048

REACTIONS (13)
  - AMAUROSIS FUGAX [None]
  - DEPRESSION [None]
  - DRUG ABUSER [None]
  - DRUG TOLERANCE [None]
  - DRUG WITHDRAWAL SYNDROME [None]
  - HAEMORRHAGE [None]
  - HEADACHE [None]
  - INADEQUATE ANALGESIA [None]
  - INTENTIONAL MISUSE [None]
  - PAIN IN EXTREMITY [None]
  - RECTAL TENESMUS [None]
  - VISUAL ACUITY REDUCED [None]
  - WRIST FRACTURE [None]
